FAERS Safety Report 18593224 (Version 1)
Quarter: 2020Q4

REPORT INFORMATION
  Report Type: Other
  Country: US (occurrence: US)
  Receive Date: 20201208
  Receipt Date: 20201208
  Transmission Date: 20210114
  Serious: Yes (Other)
  Sender: FDA-Public Use
  Company Number: US-INTERCEPT-PM2020002422

PATIENT
  Age: 58 Year
  Sex: Female

DRUGS (12)
  1. PROBIOTICS NOS [Concomitant]
     Active Substance: PROBIOTICS NOS
  2. ORENITRAM [Concomitant]
     Active Substance: TREPROSTINIL
  3. CALCIUM [Concomitant]
     Active Substance: CALCIUM
  4. OCALIVA [Suspect]
     Active Substance: OBETICHOLIC ACID
     Indication: PRIMARY BILIARY CHOLANGITIS
     Dosage: 5 MILLIGRAM, QD
     Route: 048
     Dates: start: 201710
  5. GAS-X [Concomitant]
     Active Substance: DIMETHICONE
  6. ZANTAC [Concomitant]
     Active Substance: RANITIDINE HYDROCHLORIDE
  7. IRON [Concomitant]
     Active Substance: IRON
  8. URSO FORTE [Concomitant]
     Active Substance: URSODIOL
  9. VITAMIN D3 [Concomitant]
     Active Substance: CHOLECALCIFEROL
  10. ALPRAZOLAM. [Concomitant]
     Active Substance: ALPRAZOLAM
  11. LEVOTHYROXINE. [Concomitant]
     Active Substance: LEVOTHYROXINE
  12. RISEDRONATE SODIUM. [Concomitant]
     Active Substance: RISEDRONATE SODIUM

REACTIONS (2)
  - Thyroid cancer [Unknown]
  - Cancer surgery [Unknown]

NARRATIVE: CASE EVENT DATE: 20201118
